FAERS Safety Report 19610231 (Version 2)
Quarter: 2021Q4

REPORT INFORMATION
  Report Type: Spontaneous
  Country: US (occurrence: US)
  Receive Date: 20210726
  Receipt Date: 20211103
  Transmission Date: 20220304
  Serious: No
  Sender: FDA-Public Use
  Company Number: US-LEO PHARMA-337508

PATIENT
  Age: 79 Year
  Sex: Female
  Weight: 79 kg

DRUGS (8)
  1. TACROLIMUS [Suspect]
     Active Substance: TACROLIMUS
     Indication: Chapped lips
     Route: 061
     Dates: start: 20190709
  2. TACROLIMUS [Suspect]
     Active Substance: TACROLIMUS
     Indication: Chapped lips
     Route: 061
  3. TACROLIMUS [Suspect]
     Active Substance: TACROLIMUS
     Indication: Lip dry
     Route: 061
     Dates: start: 20190709
  4. TACROLIMUS [Suspect]
     Active Substance: TACROLIMUS
     Indication: Lip dry
     Route: 061
  5. TACROLIMUS [Suspect]
     Active Substance: TACROLIMUS
     Indication: Chapped lips
     Route: 061
     Dates: start: 20190709
  6. TACROLIMUS [Suspect]
     Active Substance: TACROLIMUS
     Indication: Chapped lips
     Route: 061
  7. TACROLIMUS [Suspect]
     Active Substance: TACROLIMUS
     Indication: Lip dry
     Route: 061
     Dates: start: 20190709
  8. TACROLIMUS [Suspect]
     Active Substance: TACROLIMUS
     Indication: Lip dry
     Route: 061

REACTIONS (6)
  - Rash [Unknown]
  - Oral discomfort [Unknown]
  - Product use in unapproved indication [Unknown]
  - Rash [Unknown]
  - Off label use [Unknown]
  - Oral discomfort [Unknown]

NARRATIVE: CASE EVENT DATE: 20210601
